FAERS Safety Report 6719651-4 (Version None)
Quarter: 2010Q2

REPORT INFORMATION
  Report Type: 
  Country: None (occurrence: None)
  Receive Date: 20100511
  Receipt Date: 20100506
  Transmission Date: 20101027
  Serious: Yes (Other)
  Sender: FDA-Public Use
  Company Number: A0858470A

PATIENT
  Age: 57 Year
  Sex: Female

DRUGS (3)
  1. NICODERM CQ [Suspect]
     Indication: SMOKING CESSATION THERAPY
     Route: 062
     Dates: start: 20100328
  2. NICODERM CQ [Suspect]
     Indication: SMOKING CESSATION THERAPY
     Dates: start: 20100414, end: 20100416
  3. UNKNOWN [Concomitant]

REACTIONS (23)
  - ABNORMAL DREAMS [None]
  - AGGRESSION [None]
  - ANXIETY [None]
  - BLOOD PRESSURE INCREASED [None]
  - DIARRHOEA [None]
  - DIVERTICULITIS [None]
  - DRUG ADMINISTRATION ERROR [None]
  - EAR DISCOMFORT [None]
  - FEELING ABNORMAL [None]
  - GASTRIC DISORDER [None]
  - HOMICIDAL IDEATION [None]
  - HYPERHIDROSIS [None]
  - INSOMNIA [None]
  - IRRITABILITY [None]
  - IRRITABLE BOWEL SYNDROME [None]
  - MALAISE [None]
  - NERVOUSNESS [None]
  - NICOTINE DEPENDENCE [None]
  - OVERDOSE [None]
  - PALPITATIONS [None]
  - PERSONALITY CHANGE [None]
  - SUICIDAL IDEATION [None]
  - VOMITING [None]
